FAERS Safety Report 14238056 (Version 1)
Quarter: 2017Q4

REPORT INFORMATION
  Report Type: Spontaneous
  Country: IT (occurrence: IT)
  Receive Date: 20171130
  Receipt Date: 20171130
  Transmission Date: 20180321
  Serious: Yes (Life-Threatening, Hospitalization, Other)
  Sender: FDA-Public Use
  Company Number: IT-ALVOGEN-2017-ALVOGEN-094154

PATIENT
  Age: 58 Year
  Sex: Female

DRUGS (1)
  1. FLECAINIDE [Suspect]
     Active Substance: FLECAINIDE
     Indication: SUPRAVENTRICULAR EXTRASYSTOLES
     Route: 048

REACTIONS (2)
  - Unmasking of previously unidentified disease [Recovered/Resolved]
  - Brugada syndrome [Recovered/Resolved]
